FAERS Safety Report 13493799 (Version 2)
Quarter: 2017Q2

REPORT INFORMATION
  Report Type: Spontaneous
  Country: US (occurrence: US)
  Receive Date: 20170427
  Receipt Date: 20170511
  Transmission Date: 20170830
  Serious: Yes (Other)
  Sender: FDA-Public Use
  Company Number: US-REGENERON PHARMACEUTICALS, INC.-2017-14815

PATIENT

DRUGS (3)
  1. EYLEA [Suspect]
     Active Substance: AFLIBERCEPT
     Dosage: 2 MG MILLIGRAM(S), RIGHT EYE (OD)
     Route: 031
     Dates: start: 2014, end: 20170223
  2. EYLEA [Suspect]
     Active Substance: AFLIBERCEPT
     Indication: NEOVASCULAR AGE-RELATED MACULAR DEGENERATION
     Dosage: UNK, BOTH EYES, EVERY 6 WEEKS
     Dates: start: 2015
  3. EYLEA [Suspect]
     Active Substance: AFLIBERCEPT
     Dosage: 2 MG MILLIGRAM(S), LEFT EYE (OS)
     Route: 031
     Dates: start: 201310

REACTIONS (6)
  - Eye disorder [Unknown]
  - Malaise [Unknown]
  - Vision blurred [Not Recovered/Not Resolved]
  - Neovascular age-related macular degeneration [Unknown]
  - Metamorphopsia [Not Recovered/Not Resolved]
  - Visual impairment [Unknown]

NARRATIVE: CASE EVENT DATE: 2015
